FAERS Safety Report 6179401-X (Version None)
Quarter: 2009Q2

REPORT INFORMATION
  Report Type: 
  Country: None (occurrence: None)
  Receive Date: 20090505
  Receipt Date: 20090427
  Transmission Date: 20091009
  Serious: Yes (Death, Hospitalization)
  Sender: FDA-Public Use
  Company Number: A0776853A

PATIENT
  Age: 55 Year
  Sex: Female

DRUGS (25)
  1. HYCAMTIN [Suspect]
     Dosage: 2.4MG VARIABLE DOSE
     Route: 042
     Dates: start: 20090213, end: 20090227
  2. ACETAMINOPHEN [Concomitant]
  3. PROVENTIL [Concomitant]
  4. XANAX [Concomitant]
  5. CELEBREX [Concomitant]
  6. CIPROFLOXACIN HCL [Concomitant]
  7. CARDIZEM [Concomitant]
  8. BENADRYL [Concomitant]
  9. LOVENOX [Concomitant]
  10. NEUPOGEN [Concomitant]
  11. LASIX [Concomitant]
  12. DILAUDID [Concomitant]
  13. NOVOLOG [Concomitant]
  14. CHRONULAC [Concomitant]
  15. ATIVAN [Concomitant]
  16. FLAGYL [Concomitant]
  17. VERSED [Concomitant]
  18. MORPHINE [Concomitant]
  19. PERCOCET [Concomitant]
  20. PIPERACILLIN [Concomitant]
  21. ZOLOFT [Concomitant]
  22. ADRIAMYCIN RDF [Concomitant]
     Dates: start: 20090315
  23. CYTOXAN [Concomitant]
     Dates: start: 20090315
  24. VINCRISTINE [Concomitant]
     Dates: start: 20090315
  25. RADIATION [Concomitant]

REACTIONS (6)
  - BACTERAEMIA [None]
  - DISEASE PROGRESSION [None]
  - NO THERAPEUTIC RESPONSE [None]
  - NON-SMALL CELL LUNG CANCER METASTATIC [None]
  - RESPIRATORY DISTRESS [None]
  - STRIDOR [None]
